FAERS Safety Report 19406993 (Version 2)
Quarter: 2021Q4

REPORT INFORMATION
  Report Type: Report from Study
  Country: US (occurrence: US)
  Receive Date: 20210611
  Receipt Date: 20211115
  Transmission Date: 20220303
  Serious: No
  Sender: FDA-Public Use
  Company Number: US-NOVARTISTESTPH-NVSC2021US128551

PATIENT
  Age: 20 Year
  Sex: Male

DRUGS (1)
  1. KESIMPTA [Suspect]
     Active Substance: OFATUMUMAB
     Indication: Multiple sclerosis
     Route: 058
     Dates: start: 20210528

REACTIONS (4)
  - Oropharyngeal pain [Unknown]
  - Headache [Unknown]
  - Paraesthesia oral [Unknown]
  - Taste disorder [Unknown]

NARRATIVE: CASE EVENT DATE: 20210604
